FAERS Safety Report 15226832 (Version 1)
Quarter: 2018Q3

REPORT INFORMATION
  Report Type: Spontaneous
  Country: US (occurrence: US)
  Receive Date: 20180801
  Receipt Date: 20180801
  Transmission Date: 20181010
  Serious: No
  Sender: FDA-Public Use
  Company Number: US-SA-2018SA207605

PATIENT
  Age: 18 Year
  Sex: Male

DRUGS (2)
  1. DUPIXENT [Suspect]
     Active Substance: DUPILUMAB
     Indication: DERMATITIS ATOPIC
     Dosage: 300 MG, QOW
     Route: 058
     Dates: start: 20180531
  2. CELLCEPT [MYCOPHENOLATE MOFETIL HYDROCHLORIDE] [Concomitant]

REACTIONS (3)
  - Ocular hyperaemia [Unknown]
  - Condition aggravated [Unknown]
  - Eyelid pain [Unknown]
